FAERS Safety Report 8934632 (Version 1)
Quarter: 2012Q4

REPORT INFORMATION
  Report Type: 
  Country: US (occurrence: US)
  Receive Date: 20121129
  Receipt Date: 20121129
  Transmission Date: 20130627
  Serious: Yes (Other)
  Sender: FDA-Public Use
  Company Number: US-ELI_LILLY_AND_COMPANY-US201211006113

PATIENT
  Age: 64 Year
  Sex: Male

DRUGS (1)
  1. CYMBALTA [Suspect]
     Indication: NEUROPATHY PERIPHERAL
     Dosage: 60 mg, qd
     Dates: start: 201204

REACTIONS (4)
  - Blister [Unknown]
  - Herpes zoster [Unknown]
  - Rash [Recovered/Resolved]
  - Off label use [Unknown]
